FAERS Safety Report 13341487 (Version 1)
Quarter: 2017Q1

REPORT INFORMATION
  Report Type: Spontaneous
  Country: US (occurrence: US)
  Receive Date: 20170316
  Receipt Date: 20170316
  Transmission Date: 20170428
  Serious: No
  Sender: FDA-Public Use
  Company Number: US-ROCHE-1758252

PATIENT
  Sex: Female

DRUGS (1)
  1. ERIVEDGE [Suspect]
     Active Substance: VISMODEGIB
     Indication: BASAL CELL CARCINOMA
     Route: 048
     Dates: start: 201512, end: 20160414

REACTIONS (4)
  - Hypoacusis [Not Recovered/Not Resolved]
  - Ageusia [Recovered/Resolved]
  - Muscle spasms [Recovered/Resolved]
  - Alopecia [Not Recovered/Not Resolved]
